FAERS Safety Report 6274756-X (Version None)
Quarter: 2009Q3

REPORT INFORMATION
  Report Type: 
  Country: None (occurrence: None)
  Receive Date: 20090717
  Receipt Date: 20090711
  Transmission Date: 20100115
  Serious: Yes (Other)
  Sender: FDA-Public Use
  Company Number: CHPA2009US15158

PATIENT
  Age: 44 Year
  Sex: Female

DRUGS (1)
  1. VAGISTAT-1 [Suspect]
     Indication: VULVOVAGINAL MYCOTIC INFECTION
     Dosage: 300 MG, ONCE/SINGLE, VAGINAL
     Route: 067
     Dates: start: 20090710, end: 20090710

REACTIONS (4)
  - DRUG EXPOSURE DURING PREGNANCY [None]
  - VAGINAL DISCHARGE [None]
  - VAGINAL HAEMORRHAGE [None]
  - VULVOVAGINAL PRURITUS [None]
